FAERS Safety Report 13908247 (Version 1)
Quarter: 2017Q3

REPORT INFORMATION
  Report Type: Report from Study
  Country: CO (occurrence: CO)
  Receive Date: 20170825
  Receipt Date: 20170825
  Transmission Date: 20171127
  Serious: Yes (Death, Disabling, Other)
  Sender: FDA-Public Use
  Company Number: CO-AMGEN-COLSL2017129075

PATIENT
  Age: 87 Year
  Sex: Female

DRUGS (1)
  1. PROLIA [Suspect]
     Active Substance: DENOSUMAB
     Indication: OSTEOPOROSIS
     Dosage: 60 MG, Q6MO
     Route: 058
     Dates: start: 20170314

REACTIONS (4)
  - Post procedural infection [Fatal]
  - Cardiac failure [Fatal]
  - Thrombosis [Fatal]
  - Intervertebral disc degeneration [Fatal]

NARRATIVE: CASE EVENT DATE: 20170605
